FAERS Safety Report 11883671 (Version 2)
Quarter: 2016Q3

REPORT INFORMATION
  Report Type: Spontaneous
  Country: US (occurrence: US)
  Receive Date: 20160101
  Receipt Date: 20160805
  Transmission Date: 20161109
  Serious: No
  Sender: FDA-Public Use
  Company Number: US-ASTRAZENECA-2015SF30482

PATIENT
  Sex: Female
  Weight: 86.6 kg

DRUGS (3)
  1. DILTIAZEM ER XR [Concomitant]
     Route: 048
  2. FARXIGA [Suspect]
     Active Substance: DAPAGLIFLOZIN PROPANEDIOL
     Indication: TYPE 2 DIABETES MELLITUS
     Route: 048
     Dates: start: 2015, end: 20151215
  3. ONGLYZA [Suspect]
     Active Substance: SAXAGLIPTIN HYDROCHLORIDE
     Dosage: UNKNOWN
     Route: 048

REACTIONS (8)
  - Rash [Unknown]
  - Hair texture abnormal [Not Recovered/Not Resolved]
  - Dry skin [Not Recovered/Not Resolved]
  - Pruritus [Unknown]
  - Hunger [Not Recovered/Not Resolved]
  - Asthenia [Unknown]
  - Pain in extremity [Unknown]
  - Weight decreased [Unknown]
